FAERS Safety Report 5395230-9 (Version None)
Quarter: 2007Q3

REPORT INFORMATION
  Report Type: 
  Country: None (occurrence: None)
  Receive Date: 20070724
  Receipt Date: 20070710
  Transmission Date: 20080115
  Serious: No
  Sender: FDA-Public Use
  Company Number: US-ELI_LILLY_AND_COMPANY-US200706006320

PATIENT
  Age: 79 Year
  Sex: Female
  Weight: 55.328 kg

DRUGS (4)
  1. FORTEO [Suspect]
     Indication: OSTEOPOROSIS
     Dosage: UNK, UNK
     Dates: start: 20060214
  2. PREDNISONE [Concomitant]
     Indication: POLYMYALGIA RHEUMATICA
     Dates: end: 20061101
  3. ASPIRIN [Concomitant]
     Dosage: 81 MG, UNK
  4. MULTI-VITAMIN [Concomitant]

REACTIONS (4)
  - JOINT INJURY [None]
  - MENISCUS LESION [None]
  - POLYMYALGIA RHEUMATICA [None]
  - TEMPORAL ARTERITIS [None]
